FAERS Safety Report 4643138-6 (Version None)
Quarter: 2005Q2

REPORT INFORMATION
  Report Type: 
  Country: None (occurrence: None)
  Receive Date: 20050422
  Receipt Date: 20050415
  Transmission Date: 20051028
  Serious: Yes (Life-Threatening, Hospitalization)
  Sender: FDA-Public Use
  Company Number: US-MERCK-0504USA02760

PATIENT
  Age: 47 Year
  Sex: Male

DRUGS (9)
  1. CELEBREX [Concomitant]
     Route: 065
  2. ECOTRIN [Concomitant]
     Route: 065
  3. IMODIUM [Concomitant]
     Route: 065
  4. ZOCOR [Suspect]
     Indication: BLOOD CHOLESTEROL INCREASED
     Route: 048
     Dates: start: 20000401
  5. NEXIUM [Concomitant]
     Route: 065
  6. NEURONTIN [Concomitant]
     Route: 065
  7. PREVACID [Concomitant]
     Route: 065
  8. PRINZIDE [Concomitant]
     Route: 065
  9. TOPROL-XL [Concomitant]
     Route: 048

REACTIONS (2)
  - BLOOD CHOLESTEROL INCREASED [None]
  - CORONARY ARTERY STENOSIS [None]
